FAERS Safety Report 24687329 (Version 1)
Quarter: 2024Q4

REPORT INFORMATION
  Report Type: Spontaneous
  Country: US (occurrence: None)
  Receive Date: 20241201
  Receipt Date: 20241201
  Transmission Date: 20250115
  Serious: Yes (Other)
  Sender: Public
  Company Number: None

PATIENT
  Age: 77 Year
  Sex: Female
  Weight: 74.25 kg

DRUGS (11)
  1. LEVOTHYROXINE [Suspect]
     Active Substance: LEVOTHYROXINE
     Indication: Hypothyroidism
     Dosage: OTHER STRENGTH : MCG;?OTHER QUANTITY : 1 TABLET(S);?OTHER FREQUENCY : 5 TIMES A WEEK;?
     Route: 048
  2. LEVOTHYROXINE [Suspect]
     Active Substance: LEVOTHYROXINE
     Indication: Hypothyroidism
     Dosage: OTHER STRENGTH : MCG;?OTHER QUANTITY : 1 TABLET(S);?OTHER FREQUENCY : TWICE A WEEK;?
     Route: 048
  3. Nurtec, [Concomitant]
  4. FIORICET [Concomitant]
     Active Substance: ACETAMINOPHEN\BUTALBITAL\CAFFEINE
  5. KEPPRA [Concomitant]
     Active Substance: LEVETIRACETAM
  6. ROSUVASTATIN [Concomitant]
     Active Substance: ROSUVASTATIN
  7. PREGABALIN [Concomitant]
     Active Substance: PREGABALIN
  8. ONDANSETRON [Concomitant]
     Active Substance: ONDANSETRON
  9. CYANOCOBALAMIN\DEXPANTHENOL\NIACINAMIDE\PYRIDOXINE HYDROCHLORIDE\RIBOF [Concomitant]
     Active Substance: CYANOCOBALAMIN\DEXPANTHENOL\NIACINAMIDE\PYRIDOXINE HYDROCHLORIDE\RIBOFLAVIN 5^-PHOSPHATE SODIUM\THIA
  10. VITAMIN D3 [Concomitant]
     Active Substance: CHOLECALCIFEROL
  11. MAGNESIUM [Concomitant]
     Active Substance: MAGNESIUM

REACTIONS (1)
  - Migraine [None]

NARRATIVE: CASE EVENT DATE: 20140110
